FAERS Safety Report 4505352-X (Version None)
Quarter: 2004Q4

REPORT INFORMATION
  Report Type: 
  Country: None (occurrence: None)
  Receive Date: 20041119
  Receipt Date: 20041027
  Transmission Date: 20050328
  Serious: Yes (Hospitalization)
  Sender: FDA-Public Use
  Company Number: 200414078FR

PATIENT
  Age: 63 Year
  Sex: Male
  Weight: 79 kg

DRUGS (10)
  1. LASILIX [Suspect]
     Indication: NEPHROTIC SYNDROME
     Route: 048
     Dates: start: 20041003, end: 20041004
  2. APROVEL [Suspect]
     Route: 048
     Dates: start: 20040401, end: 20041006
  3. RENAGEL [Suspect]
     Route: 048
     Dates: start: 20041001, end: 20041004
  4. DIFRAREL [Concomitant]
     Route: 048
  5. KAYEXALATE [Concomitant]
  6. INSUMAN [Concomitant]
  7. ARANESP [Concomitant]
  8. AMLOR [Concomitant]
     Route: 048
  9. OROCAL [Concomitant]
  10. ASPEGIC 325 [Concomitant]
     Route: 048

REACTIONS (5)
  - ACUTE GENERALISED EXANTHEMATOUS PUSTULOSIS [None]
  - ASTHENIA [None]
  - BLOOD CALCIUM DECREASED [None]
  - EPILEPSY [None]
  - RENAL FAILURE [None]
